FAERS Safety Report 6427406-3 (Version None)
Quarter: 2009Q4

REPORT INFORMATION
  Report Type: 
  Country: None (occurrence: None)
  Receive Date: 20091104
  Receipt Date: 20091022
  Transmission Date: 20100525
  Serious: Yes (Other)
  Sender: FDA-Public Use
  Company Number: US-PFIZER INC-2009288433

PATIENT
  Sex: Female
  Weight: 115 kg

DRUGS (17)
  1. NEURONTIN [Suspect]
     Indication: NEURALGIA
     Dosage: UNK
     Dates: start: 20020101, end: 20030101
  2. NEURONTIN [Suspect]
     Indication: TRIGEMINAL NEURALGIA
     Dosage: 300 MG, UNK
     Dates: start: 20020101, end: 20030101
  3. LYRICA [Suspect]
     Indication: FIBROMYALGIA
     Dosage: UNK
  4. LYRICA [Suspect]
     Indication: TRIGEMINAL NEURALGIA
     Dosage: 50 MG, 3X/DAY
     Dates: start: 20030101
  5. LYRICA [Suspect]
     Indication: NEURALGIA
  6. LYRICA [Suspect]
     Indication: MYALGIA
  7. LYRICA [Suspect]
     Indication: POLYMYALGIA RHEUMATICA
  8. MOMETASONE [Concomitant]
     Dosage: UNK
  9. ATIVAN [Concomitant]
     Dosage: UNK
  10. PAMELOR [Concomitant]
     Dosage: UNK
  11. DILANTIN [Concomitant]
     Dosage: UNK
  12. MORPHINE SULFATE [Concomitant]
     Dosage: UNK
  13. NEXIUM [Concomitant]
     Dosage: UNK
  14. SYNTHROID [Concomitant]
     Dosage: UNK
  15. TRAZODONE [Concomitant]
     Dosage: UNK
  16. COMBIVENT [Concomitant]
     Dosage: UNK
  17. LIBRAX [Concomitant]
     Dosage: UNK

REACTIONS (6)
  - ASTHMA [None]
  - CEREBRAL HAEMORRHAGE [None]
  - CHRONIC OBSTRUCTIVE PULMONARY DISEASE [None]
  - DIABETES MELLITUS [None]
  - FIBROMYALGIA [None]
  - GASTRIC BYPASS [None]
